FAERS Safety Report 6272315-6 (Version None)
Quarter: 2009Q3

REPORT INFORMATION
  Report Type: 
  Country: None (occurrence: None)
  Receive Date: 20090715
  Receipt Date: 20090701
  Transmission Date: 20100115
  Serious: Yes (Hospitalization)
  Sender: FDA-Public Use
  Company Number: POMP-1000487

PATIENT
  Age: 2 Year
  Sex: Male
  Weight: 13 kg

DRUGS (24)
  1. MYOZYME [Suspect]
     Indication: GLYCOGEN STORAGE DISEASE TYPE II
     Dosage: 20 MG/KG, Q2W, INTRAVENOUS; 30 MG/KG, Q2W, INTRAVENOUS; 40 MG/KG, Q2W, INTRAVENOUS
     Route: 042
     Dates: start: 20060911, end: 20070501
  2. MYOZYME [Suspect]
     Indication: GLYCOGEN STORAGE DISEASE TYPE II
     Dosage: 20 MG/KG, Q2W, INTRAVENOUS; 30 MG/KG, Q2W, INTRAVENOUS; 40 MG/KG, Q2W, INTRAVENOUS
     Route: 042
     Dates: start: 20070509, end: 20070701
  3. MYOZYME [Suspect]
     Indication: GLYCOGEN STORAGE DISEASE TYPE II
     Dosage: 20 MG/KG, Q2W, INTRAVENOUS; 30 MG/KG, Q2W, INTRAVENOUS; 40 MG/KG, Q2W, INTRAVENOUS
     Route: 042
     Dates: start: 20070801
  4. VENOFER [Suspect]
     Indication: ANAEMIA
     Dosage: INTRAVENOUS
     Route: 042
     Dates: start: 20070201
  5. BENADRYL [Concomitant]
  6. SOLU-CORTEF [Concomitant]
  7. CALCIUM GLUBIONATE (CALCIUM GLUBIONATE) [Concomitant]
  8. EUCERIN (OMEGA-6 FATTY ACIDS) [Concomitant]
  9. EPIPEN (EPINEPHRINE HYDROCHLORIDE) [Concomitant]
  10. PROCRIT [Concomitant]
  11. ERGOCALCIFEROL (CALCIUM PHOSPHATE, CALCIUM SODIUM LACTATE) [Concomitant]
  12. FLECAINIDE ACETATE [Concomitant]
  13. HYDROCORTISONE [Concomitant]
  14. IBUPROFEN [Concomitant]
  15. IMMUNE GLOBULIN (IMMUNOGLOBULIN) [Concomitant]
  16. PREVACID [Concomitant]
  17. XOPENEX [Concomitant]
  18. METHOTREXATE [Concomitant]
  19. SULFAMETHOXAZOLE W (SULFAMETHOXAZOLE, TRIMETHOPRIM) [Concomitant]
  20. SPIRONOLACTONE [Concomitant]
  21. LIDOCAINE [Concomitant]
  22. LANSOPRAZOLE [Concomitant]
  23. BACTRIM [Concomitant]
  24. TYLENOL [Concomitant]

REACTIONS (13)
  - BACTERAEMIA [None]
  - CENTRAL LINE INFECTION [None]
  - FALL [None]
  - MORAXELLA INFECTION [None]
  - OXYGEN SATURATION DECREASED [None]
  - PSEUDOMONAL BACTERAEMIA [None]
  - PYREXIA [None]
  - RETCHING [None]
  - STAPHYLOCOCCAL INFECTION [None]
  - TRACHEITIS [None]
  - TRACHEOBRONCHITIS [None]
  - UPPER LIMB FRACTURE [None]
  - VOMITING [None]
